FAERS Safety Report 13160395 (Version 1)
Quarter: 2017Q1

REPORT INFORMATION
  Report Type: Report from Study
  Country: None (occurrence: AR)
  Receive Date: 20170127
  Receipt Date: 20170127
  Transmission Date: 20170428
  Serious: Yes (Hospitalization, Disabling, Other)
  Sender: FDA-Public Use
  Company Number: AR-ABBVIE-17P-007-1856458-00

PATIENT
  Age: 45 Year
  Sex: Female

DRUGS (1)
  1. HUMIRA [Suspect]
     Active Substance: ADALIMUMAB
     Indication: RHEUMATOID ARTHRITIS
     Route: 058
     Dates: start: 20160918, end: 20170111

REACTIONS (5)
  - Pulmonary oedema [Recovering/Resolving]
  - Swelling [Unknown]
  - Dyspnoea [Recovering/Resolving]
  - Tuberculosis [Unknown]
  - Paraplegia [Unknown]

NARRATIVE: CASE EVENT DATE: 201611
